FAERS Safety Report 7025428-5 (Version None)
Quarter: 2010Q4

REPORT INFORMATION
  Report Type: 
  Country: None (occurrence: None)
  Receive Date: 20101001
  Receipt Date: 20100927
  Transmission Date: 20110411
  Serious: Yes (Other)
  Sender: FDA-Public Use
  Company Number: CHPA2010US15293

PATIENT
  Age: 72 Year
  Sex: Female
  Weight: 58.05 kg

DRUGS (1)
  1. BUCKLEY'S COUGH MIXTURE (NCH) [Suspect]
     Indication: COUGH
     Dosage: 1 TSP, BID
     Route: 048
     Dates: start: 20100909, end: 20100910

REACTIONS (3)
  - COUGH [None]
  - DRUG INEFFECTIVE [None]
  - PNEUMONIA [None]
